FAERS Safety Report 21673432 (Version 4)
Quarter: 2023Q1

REPORT INFORMATION
  Report Type: Report from Study
  Country: FR (occurrence: None)
  Receive Date: 20221202
  Receipt Date: 20230206
  Transmission Date: 20230418
  Serious: Yes (Hospitalization)
  Sender: FDA-Public Use
  Company Number: FR-Eisai Medical Research-EC-2022-128977

PATIENT
  Age: 71 Year
  Sex: Female
  Weight: 47 kg

DRUGS (8)
  1. LENVATINIB [Suspect]
     Active Substance: LENVATINIB
     Indication: Metastatic malignant melanoma
     Dosage: CUMULATIVE DOSE OF 852 MG
     Route: 048
     Dates: start: 20220912, end: 20221121
  2. PEMBROLIZUMAB [Suspect]
     Active Substance: PEMBROLIZUMAB
     Indication: Metastatic malignant melanoma
     Dosage: CUMULATIVE DOSE OF 800 MG
     Route: 041
     Dates: start: 20220912, end: 20221114
  3. KARDEGIC [Concomitant]
     Active Substance: ASPIRIN DL-LYSINE
  4. FENOFIBRATE [Concomitant]
     Active Substance: FENOFIBRATE
  5. CANDESARTAN [Concomitant]
     Active Substance: CANDESARTAN
     Dates: start: 20220926, end: 20221024
  6. PROPRANOLOL [Concomitant]
     Active Substance: PROPRANOLOL HYDROCHLORIDE
     Dates: start: 20221024
  7. ANETHOLTRITHION [Concomitant]
     Active Substance: ANETHOLTRITHION
     Dates: start: 20221024
  8. ZOLPIDEM [Concomitant]
     Active Substance: ZOLPIDEM TARTRATE
     Dates: start: 20220912

REACTIONS (2)
  - Anal fissure [Recovered/Resolved]
  - Lower gastrointestinal haemorrhage [Recovered/Resolved]

NARRATIVE: CASE EVENT DATE: 20221121
